FAERS Safety Report 25622943 (Version 1)
Quarter: 2025Q3

REPORT INFORMATION
  Report Type: Spontaneous
  Country: CN (occurrence: CN)
  Receive Date: 20250730
  Receipt Date: 20250730
  Transmission Date: 20251021
  Serious: Yes (Other)
  Sender: ELI LILLY AND COMPANY
  Company Number: CN-ELI_LILLY_AND_COMPANY-CN202507023966

PATIENT
  Age: 77 Year
  Sex: Female
  Weight: 41 kg

DRUGS (2)
  1. SELPERCATINIB [Suspect]
     Active Substance: SELPERCATINIB
     Indication: Lung neoplasm malignant
     Dosage: 80 MG, DAILY
     Route: 048
     Dates: start: 20250605, end: 20250705
  2. GLUMETINIB [Suspect]
     Active Substance: GLUMETINIB
     Indication: Lung neoplasm malignant
     Dosage: 150 MG, DAILY
     Route: 048
     Dates: start: 20250613, end: 20250714

REACTIONS (1)
  - Drug-induced liver injury [Recovering/Resolving]

NARRATIVE: CASE EVENT DATE: 20250713
